FAERS Safety Report 4848848-3 (Version None)
Quarter: 2005Q4

REPORT INFORMATION
  Report Type: 
  Country: None (occurrence: None)
  Receive Date: 20051121
  Receipt Date: 20050825
  Transmission Date: 20060501
  Serious: Yes (Hospitalization)
  Sender: FDA-Public Use
  Company Number: 05P-163-0309380-00

PATIENT
  Age: 35 Year
  Sex: Female
  Weight: 91 kg

DRUGS (11)
  1. TRICOR [Suspect]
     Indication: BLOOD TRIGLYCERIDES INCREASED
     Dosage: 145 MG,  1 IN 1 D,  PER ORAL; 160 MG, 1 IN 1 D, PER ORAL
     Route: 048
     Dates: end: 20050804
  2. TRICOR [Suspect]
     Indication: BLOOD TRIGLYCERIDES INCREASED
     Dosage: 145 MG,  1 IN 1 D,  PER ORAL; 160 MG, 1 IN 1 D, PER ORAL
     Route: 048
     Dates: start: 19980101
  3. TRICOR [Suspect]
     Indication: BLOOD TRIGLYCERIDES INCREASED
     Dates: start: 19980101
  4. LEVOTHYROXINE SODIUM [Concomitant]
  5. PANTOPRAZOLE [Concomitant]
  6. ERRIN [Concomitant]
  7. TIZANIDINE HCL [Concomitant]
  8. LISINOPRIL [Concomitant]
  9. MEDFORMIN XR [Concomitant]
  10. TOPIRAMATE [Concomitant]
  11. PRAVASTATIN SODIUM [Concomitant]

REACTIONS (1)
  - ABDOMINAL PAIN [None]
